FAERS Safety Report 6423439-1 (Version None)
Quarter: 2009Q4

REPORT INFORMATION
  Report Type: 
  Country: None (occurrence: None)
  Receive Date: 20091102
  Receipt Date: 20091022
  Transmission Date: 20100525
  Serious: Yes (Hospitalization, Other)
  Sender: FDA-Public Use
  Company Number: B0592005A

PATIENT
  Sex: Female

DRUGS (7)
  1. ARIXTRA [Suspect]
     Indication: THROMBOSIS PROPHYLAXIS
     Dosage: 2.5MG PER DAY
     Route: 058
     Dates: start: 20090827, end: 20090829
  2. THYRADIN [Concomitant]
     Dosage: 50MCG PER DAY
     Route: 048
  3. ARTANE [Concomitant]
     Dosage: 9MG PER DAY
     Route: 048
  4. GASTER D [Concomitant]
     Dosage: 20MG PER DAY
     Route: 048
  5. JUVELA N [Concomitant]
     Dosage: 1800MG PER DAY
     Route: 048
  6. METHYCOBAL [Concomitant]
     Dosage: 4500MCG PER DAY
  7. CARBIDOPA AND LEVODOPA [Concomitant]
     Dosage: 450MG PER DAY
     Route: 048

REACTIONS (6)
  - CONTUSION [None]
  - FALL [None]
  - HYPONATRAEMIA [None]
  - INAPPROPRIATE ANTIDIURETIC HORMONE SECRETION [None]
  - SUBDURAL HAEMATOMA [None]
  - VOMITING [None]
